FAERS Safety Report 5263492-4 (Version None)
Quarter: 2007Q1

REPORT INFORMATION
  Report Type: 
  Country: None (occurrence: None)
  Receive Date: 20070313
  Receipt Date: 20070301
  Transmission Date: 20070707
  Serious: Yes (Hospitalization)
  Sender: FDA-Public Use
  Company Number: NO-BAYER-200711302GDS

PATIENT
  Age: 60 Year
  Sex: Female
  Weight: 118 kg

DRUGS (4)
  1. CIPROFLOXACIN HYDROCHLORIDE [Suspect]
     Indication: WOUND INFECTION
     Dosage: TOTAL DAILY DOSE: 1000 MG
     Route: 048
     Dates: start: 20070105, end: 20070125
  2. BREXIDOL [Concomitant]
     Indication: ROAD TRAFFIC ACCIDENT
     Route: 065
  3. FURIX [Concomitant]
     Indication: OEDEMA PERIPHERAL
     Route: 065
  4. ABBOTICIN [Concomitant]
     Indication: ERYSIPELAS
     Route: 065

REACTIONS (3)
  - EYELID OEDEMA [None]
  - NEPHROTIC SYNDROME [None]
  - OEDEMA PERIPHERAL [None]
